FAERS Safety Report 7273602-5 (Version None)
Quarter: 2011Q1

REPORT INFORMATION
  Report Type: 
  Country: None (occurrence: None)
  Receive Date: 20110203
  Receipt Date: 20101117
  Transmission Date: 20110831
  Serious: No
  Sender: FDA-Public Use
  Company Number: US-ABBOTT-10P-163-0686253-00

PATIENT
  Sex: Female
  Weight: 59.02 kg

DRUGS (4)
  1. SYNTHROID [Suspect]
     Dates: start: 20101114
  2. SYNTHROID [Suspect]
     Indication: HYPOTHYROIDISM
     Dates: start: 20100201, end: 20100401
  3. NORVASC [Concomitant]
     Indication: HYPERTENSION
  4. LEVOTHYROXINE SODIUM [Suspect]
     Indication: HYPOTHYROIDISM
     Dates: start: 20100101, end: 20101113

REACTIONS (2)
  - ARTHRALGIA [None]
  - BLOOD PRESSURE DECREASED [None]
